FAERS Safety Report 8255463-0 (Version None)
Quarter: 2012Q1

REPORT INFORMATION
  Report Type: 
  Country: None (occurrence: None)
  Receive Date: 20120329
  Receipt Date: 20120316
  Transmission Date: 20120608
  Serious: Yes (Other)
  Sender: FDA-Public Use
  Company Number: LOC-01019

PATIENT
  Age: 51 Year
  Sex: Male

DRUGS (3)
  1. LOCOID [Suspect]
     Indication: PRODUCT USED FOR UNKNOWN INDICATION
     Dosage: TOPICAL
     Route: 061
     Dates: start: 20111001, end: 20111105
  2. VOLTAREN [Suspect]
     Indication: SCIATICA
     Dosage: TOPICAL
     Route: 061
     Dates: start: 20111001, end: 20111105
  3. VOLTAREN [Suspect]
     Indication: SCIATICA
     Dosage: TOPICAL
     Route: 061
     Dates: start: 20111001, end: 20111105

REACTIONS (1)
  - HERPES ZOSTER [None]
